FAERS Safety Report 6025154-5 (Version None)
Quarter: 2008Q4

REPORT INFORMATION
  Report Type: 
  Country: None (occurrence: None)
  Receive Date: 20081231
  Receipt Date: 20081223
  Transmission Date: 20090506
  Serious: Yes (Hospitalization)
  Sender: FDA-Public Use
  Company Number: SE-PFIZER INC-2008159054

PATIENT

DRUGS (1)
  1. CELEBRA [Suspect]
     Indication: ENDOMETRIOSIS
     Route: 048
     Dates: start: 20081023, end: 20081030

REACTIONS (2)
  - PRURITUS [None]
  - TONGUE OEDEMA [None]
